FAERS Safety Report 23952934 (Version 1)
Quarter: 2024Q2

REPORT INFORMATION
  Report Type: Report from Study
  Country: US (occurrence: US)
  Receive Date: 20240608
  Receipt Date: 20240608
  Transmission Date: 20240716
  Serious: Yes (Other)
  Sender: FDA-Public Use
  Company Number: US-ABBVIE-5543545

PATIENT
  Sex: Male

DRUGS (3)
  1. SKYRIZI [Suspect]
     Active Substance: RISANKIZUMAB-RZAA
     Indication: Psoriasis
     Dosage: WEEK FOUR?FORM STRENGTH: 150MG/ML?FIRST ADMIN DATE: 2023
     Route: 058
     Dates: start: 202311, end: 202311
  2. SKYRIZI [Suspect]
     Active Substance: RISANKIZUMAB-RZAA
     Dosage: FORM STRENGTH: 150MG/ML
     Route: 058
     Dates: start: 2024
  3. SKYRIZI [Suspect]
     Active Substance: RISANKIZUMAB-RZAA
     Dosage: TIME INTERVAL: TOTAL: WEEK ZERO?FORM STRENGTH: 150MG/ML
     Route: 058
     Dates: start: 20231005, end: 20231005

REACTIONS (3)
  - Arthralgia [Not Recovered/Not Resolved]
  - Wrong technique in product usage process [Unknown]
  - General physical condition abnormal [Not Recovered/Not Resolved]

NARRATIVE: CASE EVENT DATE: 20230101
